FAERS Safety Report 5699835-7 (Version None)
Quarter: 2008Q2

REPORT INFORMATION
  Report Type: 
  Country: None (occurrence: None)
  Receive Date: 20080410
  Receipt Date: 20080331
  Transmission Date: 20081010
  Serious: No
  Sender: FDA-Public Use
  Company Number: US-BOEHRINGER INGELHEIM GMBH, GERMANY-2008-BP-04916BP

PATIENT
  Sex: Female

DRUGS (1)
  1. SPIRIVA [Suspect]
     Indication: CHRONIC OBSTRUCTIVE PULMONARY DISEASE
     Dates: start: 20070101

REACTIONS (5)
  - COUGH [None]
  - DRY THROAT [None]
  - INCREASED UPPER AIRWAY SECRETION [None]
  - THROAT IRRITATION [None]
  - TONGUE COATED [None]
